FAERS Safety Report 9335110 (Version 1)
Quarter: 2013Q2

REPORT INFORMATION
  Report Type: Spontaneous
  Country: US (occurrence: US)
  Receive Date: 20130606
  Receipt Date: 20130606
  Transmission Date: 20140414
  Serious: No
  Sender: FDA-Public Use
  Company Number: US-ASTRAZENECA-2013SE37923

PATIENT
  Age: 56 Year
  Sex: Male
  Weight: 127 kg

DRUGS (12)
  1. SEROQUEL XR [Suspect]
     Indication: MAJOR DEPRESSION
     Route: 048
     Dates: start: 20130517, end: 20130518
  2. SEROQUEL XR [Suspect]
     Indication: AFFECTIVE DISORDER
     Route: 048
     Dates: start: 20130517, end: 20130518
  3. SEROQUEL XR [Suspect]
     Indication: MAJOR DEPRESSION
     Route: 048
     Dates: start: 20130519, end: 20130520
  4. SEROQUEL XR [Suspect]
     Indication: AFFECTIVE DISORDER
     Route: 048
     Dates: start: 20130519, end: 20130520
  5. SEROQUEL XR [Suspect]
     Indication: MAJOR DEPRESSION
     Route: 048
     Dates: start: 20130521, end: 20130522
  6. SEROQUEL XR [Suspect]
     Indication: AFFECTIVE DISORDER
     Route: 048
     Dates: start: 20130521, end: 20130522
  7. SEROQUEL XR [Suspect]
     Indication: MAJOR DEPRESSION
     Route: 048
     Dates: start: 20130523
  8. SEROQUEL XR [Suspect]
     Indication: AFFECTIVE DISORDER
     Route: 048
     Dates: start: 20130523
  9. DEPAKOTE [Suspect]
     Route: 065
  10. DEPAKOTE [Suspect]
     Dosage: DOSE CHANGED
     Route: 065
  11. DEPLIN [Concomitant]
     Dates: start: 20130517
  12. VENLAFAXINE [Concomitant]

REACTIONS (4)
  - Rash [Unknown]
  - Drug tolerance decreased [Unknown]
  - Intentional drug misuse [Unknown]
  - Therapeutic response unexpected [Unknown]
